FAERS Safety Report 15944859 (Version 1)
Quarter: 2019Q1

REPORT INFORMATION
  Report Type: Spontaneous
  Country: US (occurrence: US)
  Receive Date: 20190119
  Receipt Date: 20190119
  Transmission Date: 20190417
  Serious: No
  Sender: FDA-Public Use
  Company Number: None

PATIENT
  Age: 61 Year
  Sex: Female

DRUGS (4)
  1. CEVIMELINE. [Concomitant]
     Active Substance: CEVIMELINE
  2. URSODIOL. [Concomitant]
     Active Substance: URSODIOL
  3. ATORVASTATIN [Concomitant]
     Active Substance: ATORVASTATIN
  4. OCALIVA [Suspect]
     Active Substance: OBETICHOLIC ACID
     Indication: PRIMARY BILIARY CHOLANGITIS
     Route: 048
     Dates: start: 20161122

REACTIONS (2)
  - Nasopharyngitis [None]
  - Therapy cessation [None]

NARRATIVE: CASE EVENT DATE: 201812
